FAERS Safety Report 8530261-9 (Version None)
Quarter: 2012Q3

REPORT INFORMATION
  Report Type: 
  Country: None (occurrence: None)
  Receive Date: 20120723
  Receipt Date: 20120713
  Transmission Date: 20120928
  Serious: Yes (Other)
  Sender: FDA-Public Use
  Company Number: CA-JNJFOC-20120520802

PATIENT
  Sex: Male

DRUGS (12)
  1. LEFLUNOMIDE [Concomitant]
     Route: 048
  2. CRESTOR [Concomitant]
     Route: 065
  3. REMICADE [Suspect]
     Indication: PSORIATIC ARTHROPATHY
     Route: 042
     Dates: start: 20080612, end: 20120529
  4. EZETIMIBE [Concomitant]
     Route: 065
  5. PLAVIX [Concomitant]
     Route: 065
  6. METOPROLOL SUCCINATE [Concomitant]
     Route: 065
  7. AMLODIPINE [Concomitant]
     Route: 065
  8. ZANTAC [Concomitant]
     Route: 065
  9. MELOXICAM [Concomitant]
     Route: 065
  10. RAMIPRIL [Concomitant]
     Route: 065
  11. ISOSORBIDE [Concomitant]
     Route: 065
  12. NORVASC [Concomitant]
     Route: 065

REACTIONS (3)
  - SOFT TISSUE INFECTION [None]
  - PANNICULITIS [None]
  - VASCULITIS [None]
